FAERS Safety Report 11222007 (Version 2)
Quarter: 2015Q3

REPORT INFORMATION
  Report Type: Spontaneous
  Country: IT (occurrence: IT)
  Receive Date: 20150626
  Receipt Date: 20150714
  Transmission Date: 20151125
  Serious: Yes (Other)
  Sender: FDA-Public Use
  Company Number: IT-TEVA-573037ACC

PATIENT
  Age: 58 Year
  Sex: Male

DRUGS (5)
  1. SEROQUEL - 25 MG COMPRESSE RIVESTITE CON FILM [Concomitant]
     Active Substance: QUETIAPINE FUMARATE
     Indication: MENTAL DISORDER
  2. RIVOTRIL - 2.5MG/ML GOCCE ORALI SOLUZIONE [Concomitant]
     Indication: ADVERSE DRUG REACTION
     Dosage: ORAL DROPS, SOLUTION
     Route: 048
  3. EUTIROX - 50 MICROGRAMMI COMPRESSE [Concomitant]
     Indication: HYPOTHYROIDISM
  4. COVERLAM - 5 MG/5 MG COMPRESSE [Concomitant]
     Indication: HYPERTENSION
  5. ZOLPIDEM TARTRATE. [Suspect]
     Active Substance: ZOLPIDEM TARTRATE
     Indication: DEPRESSION
     Dosage: 50 MG TOTAL
     Route: 048
     Dates: start: 20140810, end: 20140810

REACTIONS (4)
  - Sopor [Recovered/Resolved]
  - Drug abuse [Recovered/Resolved]
  - Poisoning [Recovered/Resolved]
  - Intentional product use issue [Recovered/Resolved]

NARRATIVE: CASE EVENT DATE: 20140810
